FAERS Safety Report 9254539 (Version 1)
Quarter: 2013Q2

REPORT INFORMATION
  Report Type: Spontaneous
  Country: US (occurrence: US)
  Receive Date: 20130425
  Receipt Date: 20130425
  Transmission Date: 20140414
  Serious: No
  Sender: FDA-Public Use
  Company Number: US-GLAXOSMITHKLINE-A1015317A

PATIENT
  Age: 81 Year
  Sex: Female

DRUGS (2)
  1. HORIZANT [Suspect]
     Indication: RESTLESS LEGS SYNDROME
     Dosage: 600MG AT NIGHT
     Route: 048
     Dates: start: 20130307
  2. OTHER MEDICATIONS [Concomitant]

REACTIONS (4)
  - Drug administration error [Recovering/Resolving]
  - Dizziness [Not Recovered/Not Resolved]
  - Drug hypersensitivity [Recovered/Resolved]
  - Heart rate decreased [Unknown]
